FAERS Safety Report 12429457 (Version 4)
Quarter: 2016Q3

REPORT INFORMATION
  Report Type: Report from Study
  Country: JP (occurrence: JP)
  Receive Date: 20160602
  Receipt Date: 20160929
  Transmission Date: 20161109
  Serious: Yes (Death, Life-Threatening)
  Sender: FDA-Public Use
  Company Number: JP-ABBVIE-15K-087-1399808-00

PATIENT
  Age: 6 Year
  Sex: Male
  Weight: 14 kg

DRUGS (86)
  1. HUMIRA [Suspect]
     Active Substance: ADALIMUMAB
     Route: 058
     Dates: start: 20140501, end: 20150507
  2. LEUKERIN [Suspect]
     Active Substance: MERCAPTOPURINE
     Route: 048
     Dates: start: 20150421, end: 20150518
  3. PREDNISOLONE. [Suspect]
     Active Substance: PREDNISOLONE
     Route: 048
     Dates: start: 20150326, end: 20150601
  4. ALFACALCIDOL [Concomitant]
     Active Substance: ALFACALCIDOL
     Indication: PROPHYLAXIS
     Dates: end: 20140414
  5. MESALAZINE [Concomitant]
     Active Substance: MESALAMINE
     Indication: BEHCET^S SYNDROME
     Route: 048
     Dates: start: 20140415, end: 20140515
  6. MERCAPTOPURINE MONOHYDRATE [Concomitant]
     Indication: PRODUCT USED FOR UNKNOWN INDICATION
     Dates: start: 20150407, end: 20150420
  7. MERCAPTOPURINE MONOHYDRATE [Concomitant]
     Dates: start: 20150817, end: 20150825
  8. HYDROXYZINE HYDROCHLORIDE. [Concomitant]
     Active Substance: HYDROXYZINE HYDROCHLORIDE
     Indication: PROPHYLAXIS
     Route: 050
     Dates: start: 20150804, end: 20150804
  9. HYDROXYZINE HYDROCHLORIDE. [Concomitant]
     Active Substance: HYDROXYZINE HYDROCHLORIDE
     Indication: SEDATION
     Route: 050
     Dates: start: 20150921, end: 20150921
  10. HYDROXYZINE HYDROCHLORIDE. [Concomitant]
     Active Substance: HYDROXYZINE HYDROCHLORIDE
     Route: 050
     Dates: start: 20151002, end: 20151002
  11. MIDAZOLAM [Concomitant]
     Active Substance: MIDAZOLAM\MIDAZOLAM HYDROCHLORIDE
     Indication: SEDATIVE THERAPY
     Route: 050
     Dates: start: 20150615, end: 20150615
  12. MIDAZOLAM [Concomitant]
     Active Substance: MIDAZOLAM\MIDAZOLAM HYDROCHLORIDE
     Route: 050
     Dates: start: 20150727, end: 20150727
  13. MIDAZOLAM [Concomitant]
     Active Substance: MIDAZOLAM\MIDAZOLAM HYDROCHLORIDE
     Route: 050
     Dates: start: 20150826, end: 20150826
  14. MIDAZOLAM [Concomitant]
     Active Substance: MIDAZOLAM\MIDAZOLAM HYDROCHLORIDE
     Route: 050
     Dates: start: 20150906, end: 20150908
  15. KETAMINE HYDROCHLORIDE. [Concomitant]
     Active Substance: KETAMINE HYDROCHLORIDE
     Indication: SEDATIVE THERAPY
     Route: 050
     Dates: start: 20150908, end: 20150908
  16. ACETAMINOPHEN. [Concomitant]
     Active Substance: ACETAMINOPHEN
     Indication: MEDICAL DEVICE PAIN
  17. FENTANYL CITRATE. [Concomitant]
     Active Substance: FENTANYL CITRATE
     Indication: ABDOMINAL PAIN
     Route: 041
     Dates: start: 20160224
  18. MONTELUKAST SODIUM. [Concomitant]
     Active Substance: MONTELUKAST SODIUM
     Indication: URTICARIA
     Dates: start: 20150407, end: 20150616
  19. PREDNISOLONE. [Suspect]
     Active Substance: PREDNISOLONE
     Route: 048
     Dates: start: 20150817, end: 20150930
  20. VALSARTAN. [Concomitant]
     Active Substance: VALSARTAN
     Indication: HYPERTENSION
     Route: 048
     Dates: end: 20140626
  21. ALFACALCIDOL [Concomitant]
     Active Substance: ALFACALCIDOL
     Indication: OSTEOPOROSIS
     Dates: start: 20140415, end: 20150616
  22. ALFACALCIDOL [Concomitant]
     Active Substance: ALFACALCIDOL
     Dates: start: 20150707, end: 20151007
  23. MESALAZINE [Concomitant]
     Active Substance: MESALAMINE
     Route: 048
     Dates: start: 20140516, end: 20140529
  24. MERCAPTOPURINE MONOHYDRATE [Concomitant]
     Dates: start: 20150519, end: 20150622
  25. MERCAPTOPURINE MONOHYDRATE [Concomitant]
     Dates: start: 20150623, end: 20150816
  26. HYDROXYZINE HYDROCHLORIDE. [Concomitant]
     Active Substance: HYDROXYZINE HYDROCHLORIDE
     Indication: SEDATIVE THERAPY
     Route: 050
     Dates: start: 20150624, end: 20150624
  27. MIDAZOLAM [Concomitant]
     Active Substance: MIDAZOLAM\MIDAZOLAM HYDROCHLORIDE
     Indication: SEDATIVE THERAPY
     Route: 050
     Dates: start: 20150421, end: 20150421
  28. MIDAZOLAM [Concomitant]
     Active Substance: MIDAZOLAM\MIDAZOLAM HYDROCHLORIDE
     Route: 050
     Dates: start: 20150804, end: 20150804
  29. MORPHINE HYDROCHLORIDE TRIHYDRATE [Concomitant]
     Indication: BEHCET^S SYNDROME
     Route: 048
     Dates: start: 20150817, end: 20150818
  30. FLUCONAZOLE. [Concomitant]
     Active Substance: FLUCONAZOLE
     Indication: PROPHYLAXIS
     Route: 048
     Dates: start: 20150421, end: 20150506
  31. OLOPATADINE HYDROCHLORIDE. [Concomitant]
     Active Substance: OLOPATADINE HYDROCHLORIDE
     Indication: URTICARIA
     Dates: start: 20150402, end: 20150616
  32. LEUKERIN [Suspect]
     Active Substance: MERCAPTOPURINE
     Route: 048
     Dates: start: 20150407, end: 20150420
  33. FAMOTIDINE. [Concomitant]
     Active Substance: FAMOTIDINE
     Dates: start: 20150820, end: 20150826
  34. POLYCARBOPHIL CALCIUM [Concomitant]
     Active Substance: CALCIUM POLYCARBOPHIL
     Indication: ANALGESIC THERAPY
  35. MESALAZINE [Concomitant]
     Active Substance: MESALAMINE
     Indication: BEHCET^S SYNDROME
     Route: 048
     Dates: start: 20150826, end: 20150915
  36. PREDNISOLONE. [Suspect]
     Active Substance: PREDNISOLONE
     Route: 048
     Dates: start: 20150702, end: 20150816
  37. PREDNISOLONE. [Suspect]
     Active Substance: PREDNISOLONE
     Route: 048
     Dates: start: 20151001, end: 20151007
  38. COLCHICINE. [Concomitant]
     Active Substance: COLCHICINE
     Indication: PROPHYLAXIS
  39. SALAZOSULFAPYRIDINE [Concomitant]
     Active Substance: SULFASALAZINE
     Indication: BEHCET^S SYNDROME
     Dates: start: 20140612, end: 20150616
  40. CALONAL [Concomitant]
     Active Substance: ACETAMINOPHEN
     Indication: BEHCET^S SYNDROME
     Route: 048
     Dates: start: 20150421, end: 20151007
  41. HYDROXYZINE HYDROCHLORIDE. [Concomitant]
     Active Substance: HYDROXYZINE HYDROCHLORIDE
     Indication: SEDATIVE THERAPY
     Route: 050
     Dates: start: 20150421, end: 20150421
  42. MIDAZOLAM [Concomitant]
     Active Substance: MIDAZOLAM\MIDAZOLAM HYDROCHLORIDE
     Route: 050
     Dates: start: 20151001, end: 20151001
  43. ACELIO [Concomitant]
     Active Substance: ACETAMINOPHEN
     Indication: PROPHYLAXIS
     Route: 050
     Dates: start: 20150907, end: 20150907
  44. LEUKERIN [Suspect]
     Active Substance: MERCAPTOPURINE
     Indication: BEHCET^S SYNDROME
     Route: 048
     Dates: start: 20140612, end: 20150406
  45. LEUKERIN [Suspect]
     Active Substance: MERCAPTOPURINE
     Route: 048
     Dates: start: 20150519, end: 20160622
  46. LEUKERIN [Suspect]
     Active Substance: MERCAPTOPURINE
     Route: 048
     Dates: start: 20150623, end: 20150816
  47. PREDNISOLONE. [Suspect]
     Active Substance: PREDNISOLONE
     Indication: BEHCET^S SYNDROME
     Route: 048
     Dates: end: 20150325
  48. ZOLEDRONIC ACID MONOHYDRATE [Concomitant]
     Active Substance: ZOLEDRONIC ACID
     Indication: ACQUIRED GENE MUTATION
     Route: 050
     Dates: start: 20141021, end: 20150602
  49. HYDROXYZINE HYDROCHLORIDE. [Concomitant]
     Active Substance: HYDROXYZINE HYDROCHLORIDE
     Indication: SEDATIVE THERAPY
     Route: 050
     Dates: start: 20150908, end: 20150909
  50. LIDOCAINE. [Concomitant]
     Active Substance: LIDOCAINE
     Dates: start: 20150804, end: 20150804
  51. FLUCONAZOLE. [Concomitant]
     Active Substance: FLUCONAZOLE
     Route: 048
     Dates: start: 20150714, end: 20150723
  52. OLOPATADINE HYDROCHLORIDE. [Concomitant]
     Active Substance: OLOPATADINE HYDROCHLORIDE
     Dates: start: 20150715, end: 20151007
  53. COLCHICINE. [Concomitant]
     Active Substance: COLCHICINE
     Indication: GOUT
     Route: 048
     Dates: end: 20150616
  54. MESALAZINE [Concomitant]
     Active Substance: MESALAMINE
     Route: 048
     Dates: start: 20140530, end: 20140611
  55. MERCAPTOPURINE MONOHYDRATE [Concomitant]
     Dates: start: 20150826, end: 20150903
  56. SODIUM PICOSULFATE [Concomitant]
     Active Substance: SODIUM PICOSULFATE
     Indication: PROPHYLAXIS
     Route: 048
     Dates: start: 20150702, end: 20151007
  57. MIDAZOLAM [Concomitant]
     Active Substance: MIDAZOLAM\MIDAZOLAM HYDROCHLORIDE
     Indication: SEDATION
     Route: 050
     Dates: start: 20150624, end: 20150624
  58. MIDAZOLAM [Concomitant]
     Active Substance: MIDAZOLAM\MIDAZOLAM HYDROCHLORIDE
     Route: 050
     Dates: start: 20151005, end: 20151005
  59. KETAMINE HYDROCHLORIDE. [Concomitant]
     Active Substance: KETAMINE HYDROCHLORIDE
     Indication: SEDATIVE THERAPY
     Route: 050
     Dates: start: 20150624, end: 20150624
  60. THIAMYLAL SODIUM [Concomitant]
     Active Substance: THIAMYLAL SODIUM
     Route: 050
     Dates: start: 20150813, end: 20150813
  61. METHOTREXATE. [Concomitant]
     Active Substance: METHOTREXATE
     Indication: PROPHYLAXIS AGAINST GRAFT VERSUS HOST DISEASE
     Dates: start: 20151209
  62. SULFAMETHOXAZOLE-TRIMETHOPRIM (SMZ) [Concomitant]
     Active Substance: SULFAMETHOXAZOLE\TRIMETHOPRIM
     Indication: PNEUMOCYSTIS JIROVECII PNEUMONIA
     Dates: start: 20150706
  63. SALAZOSULFAPYRIDINE [Concomitant]
     Active Substance: SULFASALAZINE
     Dates: start: 20150817, end: 20150825
  64. MERCAPTOPURINE MONOHYDRATE [Concomitant]
     Dates: start: 20150421, end: 20150518
  65. MERCAPTOPURINE MONOHYDRATE [Concomitant]
     Dates: start: 20150904, end: 20150906
  66. HYDROXYZINE HYDROCHLORIDE. [Concomitant]
     Active Substance: HYDROXYZINE HYDROCHLORIDE
     Indication: SEDATIVE THERAPY
     Route: 050
     Dates: start: 20150615, end: 20150615
  67. KETAMINE HYDROCHLORIDE. [Concomitant]
     Active Substance: KETAMINE HYDROCHLORIDE
     Indication: SEDATIVE THERAPY
     Route: 050
     Dates: start: 20151001, end: 20151001
  68. LIDOCAINE. [Concomitant]
     Active Substance: LIDOCAINE
     Dates: start: 20150615, end: 20150615
  69. LIDOCAINE. [Concomitant]
     Active Substance: LIDOCAINE
     Dates: start: 20150908, end: 20150908
  70. THIAMYLAL SODIUM [Concomitant]
     Active Substance: THIAMYLAL SODIUM
     Indication: SEDATIVE THERAPY
     Route: 050
     Dates: start: 20150615, end: 20150615
  71. POLYCARBOPHIL CALCIUM [Concomitant]
     Active Substance: CALCIUM POLYCARBOPHIL
     Indication: CONSTIPATION
     Route: 048
     Dates: start: 20150924, end: 20151007
  72. MYCOPHENOLATE MOFETIL. [Concomitant]
     Active Substance: MYCOPHENOLATE MOFETIL
     Indication: PROPHYLAXIS AGAINST GRAFT VERSUS HOST DISEASE
     Dates: start: 20151209
  73. TACROLIMUS MONOHYDRATE [Concomitant]
     Active Substance: TACROLIMUS
     Indication: PROPHYLAXIS AGAINST GRAFT VERSUS HOST DISEASE
     Dates: start: 20151209
  74. HUMIRA [Suspect]
     Active Substance: ADALIMUMAB
     Indication: BEHCET^S SYNDROME
     Route: 058
     Dates: start: 20140402
  75. HUMIRA [Suspect]
     Active Substance: ADALIMUMAB
     Route: 058
     Dates: start: 20150604, end: 20151005
  76. PREDNISOLONE. [Suspect]
     Active Substance: PREDNISOLONE
     Route: 048
     Dates: start: 20150602, end: 20150701
  77. SULFAMETHOXAZOLE-TRIMETHOPRIM (SMZ) [Concomitant]
     Active Substance: SULFAMETHOXAZOLE\TRIMETHOPRIM
     Indication: PROPHYLAXIS
     Dates: end: 20150616
  78. FAMOTIDINE. [Concomitant]
     Active Substance: FAMOTIDINE
     Indication: PROPHYLAXIS
     Dates: end: 20150616
  79. CICLOSPORIN [Concomitant]
     Active Substance: CYCLOSPORINE
     Indication: BEHCET^S SYNDROME
     Route: 048
     Dates: end: 20140618
  80. MIDAZOLAM [Concomitant]
     Active Substance: MIDAZOLAM\MIDAZOLAM HYDROCHLORIDE
     Indication: SEDATIVE THERAPY
     Route: 050
     Dates: start: 20150604, end: 20150604
  81. MIDAZOLAM [Concomitant]
     Active Substance: MIDAZOLAM\MIDAZOLAM HYDROCHLORIDE
     Indication: SEDATIVE THERAPY
     Route: 050
     Dates: start: 20150702, end: 20150702
  82. MIDAZOLAM [Concomitant]
     Active Substance: MIDAZOLAM\MIDAZOLAM HYDROCHLORIDE
     Route: 050
     Dates: start: 20150714, end: 20150714
  83. MIDAZOLAM [Concomitant]
     Active Substance: MIDAZOLAM\MIDAZOLAM HYDROCHLORIDE
     Route: 050
     Dates: start: 20150921, end: 20150921
  84. LIDOCAINE. [Concomitant]
     Active Substance: LIDOCAINE
     Indication: LOCAL ANAESTHESIA
     Dates: start: 20150421, end: 20150421
  85. THIAMYLAL SODIUM [Concomitant]
     Active Substance: THIAMYLAL SODIUM
     Indication: SEDATIVE THERAPY
     Route: 050
     Dates: start: 20150421, end: 20150421
  86. THIAMYLAL SODIUM [Concomitant]
     Active Substance: THIAMYLAL SODIUM
     Indication: SEDATION
     Route: 050
     Dates: start: 20150804, end: 20150804

REACTIONS (14)
  - Pneumonia bacterial [Recovered/Resolved]
  - Urticaria [Not Recovered/Not Resolved]
  - Fungal infection [Fatal]
  - Herpes zoster [Recovered/Resolved]
  - Nasopharyngitis [Recovering/Resolving]
  - Febrile neutropenia [Recovering/Resolving]
  - Oral candidiasis [Not Recovered/Not Resolved]
  - Febrile neutropenia [Recovering/Resolving]
  - Hypogammaglobulinaemia [Not Recovered/Not Resolved]
  - Oral candidiasis [Recovered/Resolved]
  - Myelodysplastic syndrome [Not Recovered/Not Resolved]
  - Nasopharyngitis [Recovering/Resolving]
  - Otitis media [Recovered/Resolved]
  - Antithrombin III decreased [Unknown]

NARRATIVE: CASE EVENT DATE: 20150117
